FAERS Safety Report 8227725-4 (Version None)
Quarter: 2012Q1

REPORT INFORMATION
  Report Type: 
  Country: None (occurrence: None)
  Receive Date: 20120322
  Receipt Date: 20120314
  Transmission Date: 20120608
  Serious: Yes (Hospitalization, Other)
  Sender: FDA-Public Use
  Company Number: US-ALEXION-A201200482

PATIENT
  Sex: Female

DRUGS (4)
  1. PROCARDIA [Concomitant]
     Indication: BLOOD PRESSURE ABNORMAL
  2. HYDROCHLORTHIAZID [Concomitant]
     Indication: BLOOD PRESSURE ABNORMAL
  3. SOLIRIS [Suspect]
     Indication: HAEMOLYTIC URAEMIC SYNDROME
     Dosage: UNK
     Route: 042
  4. CLONIDINE [Concomitant]
     Indication: BLOOD PRESSURE ABNORMAL

REACTIONS (8)
  - HAEMOGLOBIN DECREASED [None]
  - HAEMOPTYSIS [None]
  - BODY TEMPERATURE INCREASED [None]
  - ASTHMA [None]
  - BLOOD PRESSURE INCREASED [None]
  - DYSPNOEA [None]
  - PNEUMONIA [None]
  - INCREASED UPPER AIRWAY SECRETION [None]
